FAERS Safety Report 10810933 (Version 1)
Quarter: 2015Q1

REPORT INFORMATION
  Report Type: Report from Study
  Country: US (occurrence: US)
  Receive Date: 20150217
  Receipt Date: 20150217
  Transmission Date: 20150721
  Serious: No
  Sender: FDA-Public Use
  Company Number: US-ABBVIE-14K-163-1268233-00

PATIENT
  Age: 52 Year
  Sex: Male

DRUGS (5)
  1. HUMIRA [Suspect]
     Active Substance: ADALIMUMAB
     Dates: start: 2010
  2. UNKNOWN STEROIDS [Concomitant]
     Active Substance: UNSPECIFIED INGREDIENT
     Indication: CROHN^S DISEASE
  3. PREDNISONE. [Concomitant]
     Active Substance: PREDNISONE
     Indication: CROHN^S DISEASE
  4. HUMIRA [Suspect]
     Active Substance: ADALIMUMAB
     Indication: CROHN^S DISEASE
  5. HUMIRA [Suspect]
     Active Substance: ADALIMUMAB

REACTIONS (11)
  - Papilloma viral infection [Not Recovered/Not Resolved]
  - Back pain [Not Recovered/Not Resolved]
  - Injection site swelling [Unknown]
  - Rectal haemorrhage [Not Recovered/Not Resolved]
  - Drug ineffective [Recovering/Resolving]
  - Proctalgia [Unknown]
  - Nausea [Unknown]
  - Pain [Not Recovered/Not Resolved]
  - Injection site bruising [Unknown]
  - Abdominal pain [Unknown]
  - Vomiting [Unknown]

NARRATIVE: CASE EVENT DATE: 2012
